FAERS Safety Report 8001038-8 (Version None)
Quarter: 2011Q4

REPORT INFORMATION
  Report Type: 
  Country: None (occurrence: None)
  Receive Date: 20111222
  Receipt Date: 20110729
  Transmission Date: 20120403
  Serious: No
  Sender: FDA-Public Use
  Company Number: US-GLAXOSMITHKLINE-A0939116A

PATIENT
  Age: 43 Year
  Sex: Male

DRUGS (16)
  1. FLONASE [Suspect]
     Indication: RHINITIS ALLERGIC
     Dosage: 2SPR PER DAY
     Route: 045
     Dates: start: 20080101, end: 20080301
  2. LEXAPRO [Concomitant]
     Indication: DEPRESSION
  3. NIACIN [Concomitant]
  4. OSTEOBIFLEX [Concomitant]
  5. VITAMIN K TAB [Concomitant]
  6. HORIZANT [Suspect]
     Indication: RESTLESS LEGS SYNDROME
     Dosage: 600MG PER DAY
     Route: 048
     Dates: start: 20111010
  7. FISH OIL [Concomitant]
  8. KLONOPIN [Concomitant]
     Indication: FEELING JITTERY
  9. MULTI-VITAMIN [Concomitant]
  10. REQUIP [Suspect]
     Indication: RESTLESS LEGS SYNDROME
     Route: 048
     Dates: start: 20060101, end: 20060101
  11. REMERON [Concomitant]
     Indication: DEPRESSION
  12. CALCIUM + D [Concomitant]
  13. ALIGN [Concomitant]
  14. REQUIP XL [Suspect]
     Indication: RESTLESS LEGS SYNDROME
     Dosage: 2MG AT NIGHT
     Route: 048
     Dates: start: 20110501
  15. VERAMYST [Suspect]
     Indication: RHINITIS ALLERGIC
     Dosage: 2PUFF IN THE MORNING
     Route: 045
     Dates: start: 20090101, end: 20111001
  16. VITAMIN C [Concomitant]

REACTIONS (3)
  - SLEEP DISORDER [None]
  - INITIAL INSOMNIA [None]
  - FEELING JITTERY [None]
